FAERS Safety Report 6131287-5 (Version None)
Quarter: 2009Q1

REPORT INFORMATION
  Report Type: 
  Country: None (occurrence: None)
  Receive Date: 20090325
  Receipt Date: 20080609
  Transmission Date: 20090719
  Serious: No
  Sender: FDA-Public Use
  Company Number: US-BRISTOL-MYERS SQUIBB COMPANY-14101281

PATIENT
  Age: 64 Year
  Sex: Male
  Weight: 84 kg

DRUGS (8)
  1. ERBITUX [Suspect]
     Indication: COLON CANCER
     Dosage: STARTED ON 22JAN08 TILL 28APR08; DURATION - 3 MONTHS. D1,8,15,20.250 MG/M2=500 MG
     Route: 042
     Dates: start: 20080304
  2. IRINOTECAN HCL [Concomitant]
     Indication: COLON CANCER
     Dosage: 135 MG/M2=270 MG D1,15
     Route: 042
  3. CAMPTOSAR [Concomitant]
     Dosage: DAY 1,15
     Route: 042
     Dates: start: 20080304
  4. CLEOCIN GEL [Concomitant]
  5. TETRACYCLINE [Concomitant]
  6. ZOFRAN [Concomitant]
     Indication: PREMEDICATION
     Route: 042
  7. DECADRON [Concomitant]
     Indication: PREMEDICATION
     Route: 042
  8. BENADRYL [Concomitant]
     Indication: PREMEDICATION
     Route: 042

REACTIONS (1)
  - DRUG ADMINISTRATION ERROR [None]
